FAERS Safety Report 6728013-5 (Version None)
Quarter: 2010Q2

REPORT INFORMATION
  Report Type: 
  Country: None (occurrence: None)
  Receive Date: 20100517
  Receipt Date: 20100416
  Transmission Date: 20101027
  Serious: Yes (Death, Life-Threatening, Other)
  Sender: FDA-Public Use
  Company Number: US-BAXTER-2009BH005970

PATIENT
  Age: 80 Year
  Sex: Male
  Weight: 89 kg

DRUGS (57)
  1. HEPARIN SODIUM INJECTION [Suspect]
     Indication: CATHETERISATION CARDIAC
     Route: 042
     Dates: start: 20070605, end: 20070605
  2. HEPARIN SODIUM INJECTION [Suspect]
     Indication: CARDIAC VENTRICULOGRAM
     Route: 042
     Dates: start: 20070605, end: 20070605
  3. HEPARIN SODIUM INJECTION [Suspect]
     Route: 042
     Dates: start: 20070605, end: 20070605
  4. HEPARIN SODIUM INJECTION [Suspect]
     Indication: MITRAL VALVE REPAIR
     Route: 042
     Dates: start: 20070605, end: 20070605
  5. HEPARIN SODIUM INJECTION [Suspect]
     Indication: CORONARY ARTERY BYPASS
     Route: 042
     Dates: start: 20070605, end: 20070605
  6. HEPARIN SODIUM INJECTION [Suspect]
     Route: 042
     Dates: start: 20070601, end: 20070601
  7. HEPARIN SODIUM INJECTION [Suspect]
     Route: 042
     Dates: start: 20070601, end: 20070601
  8. HEPARIN SODIUM INJECTION [Suspect]
     Route: 042
     Dates: start: 20070601, end: 20070601
  9. HEPARIN SODIUM INJECTION [Suspect]
     Route: 042
     Dates: start: 20070601, end: 20070601
  10. HEPARIN SODIUM INJECTION [Suspect]
     Route: 042
     Dates: start: 20070601, end: 20070601
  11. HEPARIN SODIUM INJECTION [Suspect]
     Route: 042
     Dates: start: 20070520, end: 20070610
  12. HEPARIN SODIUM INJECTION [Suspect]
     Route: 042
     Dates: start: 20070520, end: 20070610
  13. HEPARIN SODIUM INJECTION [Suspect]
     Route: 042
     Dates: start: 20070520, end: 20070610
  14. HEPARIN SODIUM INJECTION [Suspect]
     Route: 042
     Dates: start: 20070520, end: 20070610
  15. HEPARIN SODIUM INJECTION [Suspect]
     Route: 042
     Dates: start: 20070520, end: 20070610
  16. HEPARIN SODIUM 1,000 UNITS AND SODIUM CHLORIDE 0.9% [Suspect]
     Indication: DRUG USE FOR UNKNOWN INDICATION
     Route: 042
     Dates: start: 20070520, end: 20070610
  17. HEPARIN SODIUM 5,000 UNITS IN DEXTROSE 5% [Suspect]
     Indication: DRUG USE FOR UNKNOWN INDICATION
     Route: 042
     Dates: start: 20070520, end: 20070610
  18. ASPIRIN [Concomitant]
     Indication: DRUG USE FOR UNKNOWN INDICATION
     Route: 048
  19. ATENOLOL [Concomitant]
     Indication: DRUG USE FOR UNKNOWN INDICATION
     Route: 048
  20. FISH OIL [Concomitant]
     Indication: DRUG USE FOR UNKNOWN INDICATION
     Route: 048
  21. FLAXSEED OIL [Concomitant]
     Indication: DRUG USE FOR UNKNOWN INDICATION
     Route: 048
  22. HYDROCHLOROTHIAZIDE [Concomitant]
     Indication: DRUG USE FOR UNKNOWN INDICATION
     Route: 048
  23. LISINOPRIL [Concomitant]
     Indication: DRUG USE FOR UNKNOWN INDICATION
     Route: 048
  24. NAPROXEN [Concomitant]
     Indication: DRUG USE FOR UNKNOWN INDICATION
     Route: 048
  25. NIASPAN [Concomitant]
     Indication: DRUG USE FOR UNKNOWN INDICATION
     Route: 048
  26. VITAMIN C [Concomitant]
     Indication: DRUG USE FOR UNKNOWN INDICATION
     Route: 048
  27. ACETAMINOPHEN [Concomitant]
     Indication: DRUG USE FOR UNKNOWN INDICATION
     Route: 048
  28. AMINOCAPROIC ACID [Concomitant]
     Indication: DRUG USE FOR UNKNOWN INDICATION
     Route: 042
  29. AZTREONAM [Concomitant]
     Indication: DRUG USE FOR UNKNOWN INDICATION
     Route: 042
  30. BISACODYL [Concomitant]
     Indication: DRUG USE FOR UNKNOWN INDICATION
     Route: 048
  31. DIPHENHYDRAMINE [Concomitant]
     Indication: DRUG USE FOR UNKNOWN INDICATION
     Route: 048
  32. ENOXAPARIN SODIUM [Concomitant]
     Indication: DRUG USE FOR UNKNOWN INDICATION
     Route: 065
  33. FAMOTIDINE [Concomitant]
     Indication: DRUG USE FOR UNKNOWN INDICATION
     Route: 042
  34. HYDROCODONE [Concomitant]
     Indication: DRUG USE FOR UNKNOWN INDICATION
     Route: 065
  35. POTASSIUM CHLORIDE [Concomitant]
     Indication: DRUG USE FOR UNKNOWN INDICATION
     Route: 065
  36. KETOROLAC TROMETHAMINE [Concomitant]
     Indication: DRUG USE FOR UNKNOWN INDICATION
     Route: 042
  37. LASIX [Concomitant]
     Indication: DRUG USE FOR UNKNOWN INDICATION
     Route: 065
     Dates: start: 20070601
  38. METOCLOPRAMIDE [Concomitant]
     Indication: DRUG USE FOR UNKNOWN INDICATION
     Route: 065
  39. METOPROLOL TARTRATE [Concomitant]
     Indication: DRUG USE FOR UNKNOWN INDICATION
     Route: 065
  40. MORPHINE SULFATE [Concomitant]
     Indication: DRUG USE FOR UNKNOWN INDICATION
     Route: 042
  41. ONDANSETRON [Concomitant]
     Indication: DRUG USE FOR UNKNOWN INDICATION
     Route: 042
  42. OXYCODONE [Concomitant]
     Indication: DRUG USE FOR UNKNOWN INDICATION
     Route: 065
  43. PROPOFOL [Concomitant]
     Indication: DRUG USE FOR UNKNOWN INDICATION
     Route: 065
  44. SALINE [Concomitant]
     Indication: DRUG USE FOR UNKNOWN INDICATION
     Route: 065
  45. SENOKOT                                 /USA/ [Concomitant]
     Indication: DRUG USE FOR UNKNOWN INDICATION
     Route: 065
  46. SIMVASTATIN [Concomitant]
     Indication: DRUG USE FOR UNKNOWN INDICATION
     Route: 065
  47. TEMAZEPAM [Concomitant]
     Indication: DRUG USE FOR UNKNOWN INDICATION
     Route: 065
  48. VANCOMYCIN [Concomitant]
     Indication: DRUG USE FOR UNKNOWN INDICATION
     Route: 042
  49. HYDROCORTISONE [Concomitant]
     Indication: DRUG USE FOR UNKNOWN INDICATION
     Route: 042
     Dates: start: 20070601
  50. MIDAZOLAM HCL [Concomitant]
     Indication: DRUG USE FOR UNKNOWN INDICATION
     Route: 042
     Dates: start: 20070601
  51. MEPERIDINE HCL [Concomitant]
     Indication: DRUG USE FOR UNKNOWN INDICATION
     Route: 042
     Dates: start: 20070601
  52. NITROGLYCERIN COMP. [Concomitant]
     Indication: DRUG USE FOR UNKNOWN INDICATION
     Route: 022
     Dates: start: 20070601
  53. NORMAL SALINE [Concomitant]
     Indication: DRUG USE FOR UNKNOWN INDICATION
     Route: 042
     Dates: start: 20070601
  54. BENADRYL [Concomitant]
     Indication: DRUG USE FOR UNKNOWN INDICATION
     Route: 048
     Dates: start: 20070601
  55. LIDOCAINE [Concomitant]
     Indication: DRUG USE FOR UNKNOWN INDICATION
     Route: 058
     Dates: start: 20070601
  56. OMNIPAQUE ^SCHERING^ [Concomitant]
     Indication: DRUG USE FOR UNKNOWN INDICATION
     Route: 065
     Dates: start: 20070601
  57. OMNIPAQUE ^SCHERING^ [Concomitant]
     Route: 065
     Dates: start: 20070601

REACTIONS (17)
  - CARDIAC ARREST [None]
  - CORONARY ARTERY DISEASE [None]
  - HEPARIN-INDUCED THROMBOCYTOPENIA [None]
  - HEPARIN-INDUCED THROMBOCYTOPENIA TEST [None]
  - HEPATIC FAILURE [None]
  - HYPOPERFUSION [None]
  - HYPOTENSION [None]
  - HYPOXIA [None]
  - INTERNATIONAL NORMALISED RATIO INCREASED [None]
  - LIVER FUNCTION TEST ABNORMAL [None]
  - MESENTERIC VASCULAR INSUFFICIENCY [None]
  - MITRAL VALVE DISEASE [None]
  - MULTI-ORGAN FAILURE [None]
  - RENAL FAILURE [None]
  - RENAL FAILURE ACUTE [None]
  - RENAL TUBULAR NECROSIS [None]
  - UPPER GASTROINTESTINAL HAEMORRHAGE [None]
